FAERS Safety Report 5941368-4 (Version None)
Quarter: 2008Q4

REPORT INFORMATION
  Report Type: 
  Country: None (occurrence: None)
  Receive Date: 20081105
  Receipt Date: 20081027
  Transmission Date: 20090506
  Serious: Yes (Other)
  Sender: FDA-Public Use
  Company Number: FR-JNJFOC-20081001439

PATIENT
  Age: 40 Year
  Sex: Male
  Weight: 65 kg

DRUGS (4)
  1. DOXORUBICIN HCL [Suspect]
     Indication: KAPOSI'S SARCOMA
     Route: 042
  2. KIVEXA [Concomitant]
  3. NORVIR [Concomitant]
  4. TELZIR [Concomitant]

REACTIONS (3)
  - COUGH [None]
  - DYSPNOEA [None]
  - EMPHYSEMA [None]
